FAERS Safety Report 6966166-4 (Version None)
Quarter: 2010Q3

REPORT INFORMATION
  Report Type: 
  Country: None (occurrence: None)
  Receive Date: 20100903
  Receipt Date: 20100826
  Transmission Date: 20110219
  Serious: Yes (Other)
  Sender: FDA-Public Use
  Company Number: GXKR2010IE09706

PATIENT
  Age: 68 Year
  Sex: Female

DRUGS (13)
  1. FLUCLOXACILLIN (NGX) [Suspect]
     Indication: SOFT TISSUE INFECTION
     Dosage: 500 MG, QID
     Route: 048
  2. WARFARIN SODIUM [Suspect]
     Indication: ATRIAL FIBRILLATION
     Dosage: 4 AND 3MG ON ALTERNATE DAYS
  3. PHENOXYMETHYLPENICILLIN [Concomitant]
     Indication: SOFT TISSUE INFECTION
     Dosage: 999 MG, QID
  4. QUINAPRIL [Concomitant]
  5. ATORVASTATIN [Concomitant]
  6. METOPROLOL TARTRATE [Concomitant]
  7. CALCIUM CHANNEL BLOCKERS [Concomitant]
  8. SPIRONOLACTONE [Concomitant]
  9. BUMETANIDE [Concomitant]
  10. DIGOXIN [Concomitant]
  11. METFORMIN [Concomitant]
  12. GLICLAZIDE [Concomitant]
  13. REGULAR INSULIN [Concomitant]

REACTIONS (3)
  - DRUG INTERACTION [None]
  - HEMIPARESIS [None]
  - ISCHAEMIC STROKE [None]
